FAERS Safety Report 18212927 (Version 2)
Quarter: 2020Q3

REPORT INFORMATION
  Report Type: Spontaneous
  Country: CN (occurrence: CN)
  Receive Date: 20200831
  Receipt Date: 20200929
  Transmission Date: 20201103
  Serious: Yes (Life-Threatening)
  Sender: FDA-Public Use
  Company Number: CN-PFIZER INC-2020331881

PATIENT
  Age: 75 Year
  Sex: Female
  Weight: 50 kg

DRUGS (7)
  1. SODIUM CHLORIDE. [Concomitant]
     Active Substance: SODIUM CHLORIDE
     Indication: URINARY TRACT INFECTION
     Dosage: 100 ML, 3X/DAY
     Route: 041
     Dates: start: 20200726, end: 20200815
  2. BEI NENG [MEROPENEM] [Suspect]
     Active Substance: MEROPENEM
     Dosage: 1 G, 3X/DAY (EXPECTED TO BE 10?14 DAYS)
     Route: 041
     Dates: start: 20200821
  3. DIFLUCAN [Suspect]
     Active Substance: FLUCONAZOLE
     Indication: FUNGAL INFECTION
     Dosage: 0.2 G, 1X/DAY
     Route: 041
     Dates: start: 20200807, end: 20200820
  4. DIFLUCAN [Suspect]
     Active Substance: FLUCONAZOLE
     Indication: FUNGAL INFECTION
  5. BEI NENG [MEROPENEM] [Suspect]
     Active Substance: MEROPENEM
     Indication: URINARY TRACT INFECTION
     Dosage: 1 G, 2X/DAY
     Route: 041
     Dates: start: 20200726, end: 20200815
  6. COMPOUND SULFAMETHOXAZOLE [SULFAMETHOXAZOLE;TRIMETHOPRIM] [Suspect]
     Active Substance: SULFAMETHOXAZOLE\TRIMETHOPRIM
     Indication: URINARY TRACT INFECTION
     Dosage: 2 DF, 2X/DAY
     Route: 048
     Dates: start: 20200726, end: 20200815
  7. SODIUM CHLORIDE. [Concomitant]
     Active Substance: SODIUM CHLORIDE
     Dosage: 100 ML, 3X/DAY
     Route: 041
     Dates: start: 20200821

REACTIONS (6)
  - Myelosuppression [Recovering/Resolving]
  - Haemoglobin decreased [Recovering/Resolving]
  - Platelet count decreased [Recovering/Resolving]
  - Neutrophil count decreased [Recovering/Resolving]
  - White blood cell count decreased [Recovering/Resolving]
  - Agranulocytosis [Recovering/Resolving]

NARRATIVE: CASE EVENT DATE: 20200815
